FAERS Safety Report 5367668-7 (Version None)
Quarter: 2007Q2

REPORT INFORMATION
  Report Type: 
  Country: None (occurrence: None)
  Receive Date: 20070619
  Receipt Date: 20070611
  Transmission Date: 20071010
  Serious: Yes (Other)
  Sender: FDA-Public Use
  Company Number: L07-GER-02552-01

PATIENT
  Age: 39 Year

DRUGS (1)
  1. CARBAMAZEPINE [Suspect]
     Indication: EPILEPSY

REACTIONS (3)
  - HAEMODIALYSIS [None]
  - KIDNEY FIBROSIS [None]
  - RENAL FAILURE CHRONIC [None]
